FAERS Safety Report 15259199 (Version 1)
Quarter: 2018Q3

REPORT INFORMATION
  Report Type: Spontaneous
  Country: US (occurrence: US)
  Receive Date: 20180809
  Receipt Date: 20180809
  Transmission Date: 20181010
  Serious: Yes (Other)
  Sender: FDA-Public Use
  Company Number: US-UNICHEM PHARMACEUTICALS (USA) INC-UCM201807-000183

PATIENT
  Age: 58 Year
  Sex: Male
  Weight: 79.37 kg

DRUGS (8)
  1. AMLODIPINE [Suspect]
     Active Substance: AMLODIPINE BESYLATE
     Indication: HYPERTENSION
     Dates: end: 20180724
  2. NITROGLYCERIN. [Concomitant]
     Active Substance: NITROGLYCERIN
     Indication: CHEST PAIN
  3. FLUTICASONE. [Concomitant]
     Active Substance: FLUTICASONE
     Dosage: 2 SPRAYS IN EACH NOSTRIL
     Route: 045
  4. ASPIRIN. [Concomitant]
     Active Substance: ASPIRIN
  5. AMLODIPINE [Suspect]
     Active Substance: AMLODIPINE BESYLATE
  6. EZETIMIBE. [Concomitant]
     Active Substance: EZETIMIBE
  7. ATORVASTATIN [Concomitant]
     Active Substance: ATORVASTATIN
     Indication: ISCHAEMIC HEART DISEASE PROPHYLAXIS
  8. COLECALCIFEROL  VIT D3 [Concomitant]
     Dosage: 1000U

REACTIONS (3)
  - Dysgeusia [Recovered/Resolved]
  - Choking sensation [Recovered/Resolved]
  - Product solubility abnormal [Unknown]
